FAERS Safety Report 4651653-4 (Version None)
Quarter: 2005Q2

REPORT INFORMATION
  Report Type: 
  Country: None (occurrence: None)
  Receive Date: 20050404
  Receipt Date: 20041102
  Transmission Date: 20051028
  Serious: No
  Sender: FDA-Public Use
  Company Number: USA041183039

PATIENT
  Sex: Female

DRUGS (2)
  1. CYMBALTA [Suspect]
     Indication: SEASONAL AFFECTIVE DISORDER
     Dosage: 60 MG DAY
     Dates: start: 20041001
  2. FLUOXETINE [Concomitant]

REACTIONS (1)
  - FEELING ABNORMAL [None]
